FAERS Safety Report 11783169 (Version 2)
Quarter: 2015Q4

REPORT INFORMATION
  Report Type: Report from Study
  Country: DE (occurrence: DE)
  Receive Date: 20151127
  Receipt Date: 20151201
  Transmission Date: 20160305
  Serious: Yes (Hospitalization)
  Sender: FDA-Public Use
  Company Number: DE-ROCHE-1624696

PATIENT
  Age: 48 Year
  Sex: Female
  Weight: 53 kg

DRUGS (6)
  1. PERTUZUMAB [Suspect]
     Active Substance: PERTUZUMAB
     Indication: BREAST CANCER
     Dosage: LOADING DOSE. THE MOST RECENT DOSE OF PERTUZUMAB WAS RECEIVED ON 16/JUL/2015 PRIOR TO ONSET OF ADVER
     Route: 042
     Dates: start: 20150716, end: 20150716
  2. PERTUZUMAB [Suspect]
     Active Substance: PERTUZUMAB
     Indication: HER-2 POSITIVE BREAST CANCER
     Dosage: MAINTAINENCE DOSE. THE MOST RECENT DOSE OF PERTUZUMAB WAS RECEIVED ON 29/OCT/2015 PRIOR TO ONSET OF
     Route: 042
     Dates: start: 20150806, end: 20151112
  3. PACLITAXEL. [Suspect]
     Active Substance: PACLITAXEL
     Indication: TRIPLE NEGATIVE BREAST CANCER
     Dosage: DATE OF MOST RECENT DOSE ADMINISTERED PRIOR TO THE ONSET OF SAE WAS ON 29/OCT/2015. THERAPY TEMPORAR
     Route: 042
     Dates: start: 20150716, end: 20151112
  4. TRASTUZUMAB [Suspect]
     Active Substance: TRASTUZUMAB
     Indication: BREAST CANCER
     Dosage: LOADING DOSE. THE MOST RECENT DOSE OF TRASTUZUMAB WAS RECEIVED ON 16/JUL/2015 PRIOR TO ONSET OF ADVE
     Route: 042
     Dates: start: 20150716, end: 20150716
  5. TRASTUZUMAB [Suspect]
     Active Substance: TRASTUZUMAB
     Indication: HER-2 POSITIVE BREAST CANCER
     Dosage: MAINTAINENCE DOSE. THE MOST RECENT DOSE OF TRASTUZUMAB WAS RECEIVED ON 29/OCT/2015 PRIOR TO ONSET OF
     Route: 042
     Dates: start: 20150806, end: 20151112
  6. DOXORUBICIN HYDROCHLORIDE. [Suspect]
     Active Substance: DOXORUBICIN HYDROCHLORIDE
     Indication: TRIPLE NEGATIVE BREAST CANCER
     Dosage: DATE OF MOST RECENT DOSE ADMINISTERED PRIOR TO THE ONSET OF SAE WAS ON 29/OCT/2015. THERAPY TEMPORAR
     Route: 042
     Dates: start: 20150716, end: 20151112

REACTIONS (2)
  - Dehydration [Recovered/Resolved]
  - Pulmonary embolism [Recovered/Resolved]

NARRATIVE: CASE EVENT DATE: 20150716
